FAERS Safety Report 8326334-6 (Version None)
Quarter: 2012Q2

REPORT INFORMATION
  Report Type: 
  Country: None (occurrence: None)
  Receive Date: 20120501
  Receipt Date: 20120423
  Transmission Date: 20120825
  Serious: Yes (Other)
  Sender: FDA-Public Use
  Company Number: FR-ELI_LILLY_AND_COMPANY-FR201204009203

PATIENT
  Age: 55 Year

DRUGS (4)
  1. FOLIC ACID [Concomitant]
  2. PEMETREXED [Suspect]
     Indication: LUNG ADENOCARCINOMA METASTATIC
  3. B12-VITAMIN [Concomitant]
  4. CARBOPLATIN [Concomitant]
     Indication: LUNG ADENOCARCINOMA METASTATIC

REACTIONS (1)
  - ACUTE RESPIRATORY DISTRESS SYNDROME [None]
